FAERS Safety Report 6198394-2 (Version None)
Quarter: 2009Q2

REPORT INFORMATION
  Report Type: 
  Country: None (occurrence: None)
  Receive Date: 20090518
  Receipt Date: 20090311
  Transmission Date: 20091009
  Serious: No
  Sender: FDA-Public Use
  Company Number: WAES 0903USA01870

PATIENT

DRUGS (4)
  1. ISENTRESS [Suspect]
     Indication: HIV INFECTION
     Dosage: /PO
     Route: 048
     Dates: start: 20090202
  2. ABACAVIR SULFATE [Concomitant]
  3. INDINIVIR SULFATE [Concomitant]
  4. RITONAVIR [Concomitant]

REACTIONS (3)
  - INSOMNIA [None]
  - OFF LABEL USE [None]
  - PSYCHOMOTOR HYPERACTIVITY [None]
